FAERS Safety Report 8107261-6 (Version None)
Quarter: 2012Q1

REPORT INFORMATION
  Report Type: 
  Country: None (occurrence: None)
  Receive Date: 20120202
  Receipt Date: 20120130
  Transmission Date: 20120608
  Serious: Yes (Hospitalization)
  Sender: FDA-Public Use
  Company Number: US-GILEAD-2011-0047998

PATIENT
  Sex: Female

DRUGS (3)
  1. REMODULIN [Concomitant]
  2. LETAIRIS [Suspect]
     Indication: PULMONARY HYPERTENSION
     Dosage: 5 MG, UNK
     Route: 048
     Dates: start: 20090330
  3. LETAIRIS [Suspect]
     Indication: SCLERODERMA

REACTIONS (3)
  - DIARRHOEA [None]
  - ELECTROLYTE IMBALANCE [None]
  - URINARY TRACT INFECTION [None]
